FAERS Safety Report 6975661-3 (Version None)
Quarter: 2010Q3

REPORT INFORMATION
  Report Type: 
  Country: None (occurrence: None)
  Receive Date: 20100910
  Receipt Date: 20100825
  Transmission Date: 20110219
  Serious: Yes (Hospitalization, Other)
  Sender: FDA-Public Use
  Company Number: TR-RANBAXY-2010RR-37455

PATIENT
  Age: 45 Year
  Sex: Female

DRUGS (3)
  1. FENOFIBRATE [Suspect]
     Indication: HYPERTRIGLYCERIDAEMIA
     Dosage: 200 MG, UNK
     Route: 065
  2. GLIMEPIRIDE [Concomitant]
     Indication: TYPE 2 DIABETES MELLITUS
     Dosage: 3 MG, UNK
     Route: 065
  3. METFORMIN [Concomitant]
     Indication: TYPE 2 DIABETES MELLITUS
     Dosage: 2 G, UNK
     Route: 065

REACTIONS (2)
  - RENAL FAILURE [None]
  - RHABDOMYOLYSIS [None]
